FAERS Safety Report 7602237-7 (Version None)
Quarter: 2011Q3

REPORT INFORMATION
  Report Type: 
  Country: None (occurrence: None)
  Receive Date: 20110711
  Receipt Date: 20110630
  Transmission Date: 20111222
  Serious: Yes (Other)
  Sender: FDA-Public Use
  Company Number: US-ASTRAZENECA-2009SE30506

PATIENT
  Age: 25 Year
  Sex: Female

DRUGS (15)
  1. SEROQUEL [Suspect]
     Route: 048
  2. PHENERGAN HCL [Concomitant]
  3. CIPROFLOXACIN [Concomitant]
  4. SEROQUEL [Suspect]
     Route: 048
  5. SEROQUEL [Suspect]
     Route: 048
     Dates: start: 20081201
  6. SEROQUEL [Suspect]
     Route: 048
     Dates: start: 20081201
  7. CELEXA [Concomitant]
  8. KLONOPIN [Concomitant]
  9. DITROPAN [Concomitant]
  10. PHENAZOPYRIDINE HCL TAB [Concomitant]
  11. SEROQUEL [Suspect]
     Indication: BIPOLAR DISORDER
     Dosage: 25-50 MG DAILY
     Route: 048
  12. SEROQUEL [Suspect]
     Indication: BIPOLAR I DISORDER
     Dosage: 25-50 MG DAILY
     Route: 048
  13. SEROQUEL [Suspect]
     Route: 048
     Dates: start: 20081201
  14. SEROQUEL [Suspect]
     Route: 048
     Dates: start: 20081201
  15. PREVACID [Concomitant]

REACTIONS (16)
  - LOSS OF CONSCIOUSNESS [None]
  - DRUG INEFFECTIVE [None]
  - MOOD ALTERED [None]
  - BLADDER CATHETERISATION [None]
  - NEPHROLITHIASIS [None]
  - VICTIM OF SEXUAL ABUSE [None]
  - AMNESIA [None]
  - DRUG DOSE OMISSION [None]
  - IMPAIRED DRIVING ABILITY [None]
  - TACHYPHRENIA [None]
  - ADJUSTMENT DISORDER [None]
  - WEIGHT INCREASED [None]
  - CIRCADIAN RHYTHM SLEEP DISORDER [None]
  - URINARY RETENTION [None]
  - HYPERSOMNIA [None]
  - SEDATION [None]
